FAERS Safety Report 24361064 (Version 1)
Quarter: 2024Q3

REPORT INFORMATION
  Report Type: Spontaneous
  Country: US (occurrence: None)
  Receive Date: 20240925
  Receipt Date: 20240925
  Transmission Date: 20241016
  Serious: No
  Sender: UNICHEM
  Company Number: US-ARIS GLOBAL-UCM202401-000025

PATIENT
  Sex: Female

DRUGS (1)
  1. CLONIDINE HYDROCHLORIDE [Suspect]
     Active Substance: CLONIDINE HYDROCHLORIDE
     Indication: Blood pressure abnormal
     Dosage: UNKNOWN

REACTIONS (5)
  - Salivary hypersecretion [Not Recovered/Not Resolved]
  - Dysphagia [Not Recovered/Not Resolved]
  - Teeth brittle [Not Recovered/Not Resolved]
  - Saliva altered [Not Recovered/Not Resolved]
  - Dry mouth [Not Recovered/Not Resolved]
